FAERS Safety Report 25671940 (Version 1)
Quarter: 2025Q3

REPORT INFORMATION
  Report Type: Report from Study
  Country: US (occurrence: US)
  Receive Date: 20250812
  Receipt Date: 20250812
  Transmission Date: 20251020
  Serious: No
  Sender: MALLINCKRODT
  Company Number: US-MALLINCKRODT-MNK202504570

PATIENT
  Age: 57 Year
  Sex: Female
  Weight: 150 kg

DRUGS (6)
  1. CORTICOTROPIN [Suspect]
     Active Substance: CORTICOTROPIN
     Indication: Multiple sclerosis
     Dosage: 80 UNITS
     Route: 058
     Dates: start: 20250722
  2. BIOTIN [Concomitant]
     Active Substance: BIOTIN
  3. VITAMIN D3 [Concomitant]
     Active Substance: CHOLECALCIFEROL
  4. DUOLAXIN [Concomitant]
  5. MIRABEGRON [Concomitant]
     Active Substance: MIRABEGRON
  6. KESIMPTA [Concomitant]
     Active Substance: OFATUMUMAB

REACTIONS (6)
  - Dysgeusia [Recovering/Resolving]
  - Feeling abnormal [Recovering/Resolving]
  - Eye swelling [Recovering/Resolving]
  - Swelling face [Unknown]
  - Asthenia [Unknown]
  - Tongue disorder [Recovering/Resolving]

NARRATIVE: CASE EVENT DATE: 20250701
